FAERS Safety Report 9646350 (Version 1)
Quarter: 2013Q4

REPORT INFORMATION
  Report Type: Spontaneous
  Country: JP (occurrence: JP)
  Receive Date: 20131025
  Receipt Date: 20131025
  Transmission Date: 20140711
  Serious: Yes (Other)
  Sender: FDA-Public Use
  Company Number: PHHY2013JP118120

PATIENT
  Age: 65 Year
  Sex: Female

DRUGS (7)
  1. VINCRISTINE [Suspect]
     Indication: DIFFUSE LARGE B-CELL LYMPHOMA STAGE II
  2. VINCRISTINE [Suspect]
     Indication: EWING^S SARCOMA
  3. DOXORUBICIN [Suspect]
     Indication: DIFFUSE LARGE B-CELL LYMPHOMA STAGE II
  4. PREDNISOLONE [Suspect]
     Indication: DIFFUSE LARGE B-CELL LYMPHOMA
  5. CYCLOPHOSPHAMIDE [Suspect]
     Indication: DIFFUSE LARGE B-CELL LYMPHOMA STAGE II
  6. CYCLOPHOSPHAMIDE [Suspect]
     Indication: EWING^S SARCOMA
  7. GRANULOCYTE COLONY-STIMULATING FACTOR NOS [Concomitant]

REACTIONS (3)
  - Ewing^s sarcoma [Unknown]
  - Mass [Unknown]
  - Pneumocystis jirovecii pneumonia [Unknown]
